APPROVED DRUG PRODUCT: BONTRIL
Active Ingredient: PHENDIMETRAZINE TARTRATE
Strength: 105MG
Dosage Form/Route: CAPSULE, EXTENDED RELEASE;ORAL
Application: A088021 | Product #001
Applicant: VALEANT PHARMACEUTICALS INTERNATIONAL
Approved: Sep 21, 1982 | RLD: No | RS: No | Type: DISCN